FAERS Safety Report 8910774 (Version 1)
Quarter: 2012Q4

REPORT INFORMATION
  Report Type: Report from Study
  Country: IT (occurrence: IT)
  Receive Date: 20121116
  Receipt Date: 20121116
  Transmission Date: 20130627
  Serious: Yes (Hospitalization)
  Sender: FDA-Public Use
  Company Number: IT-PFIZER INC-2012284748

PATIENT
  Age: 62 Year
  Sex: Female
  Weight: 112 kg

DRUGS (1)
  1. CRIZOTINIB [Suspect]
     Dosage: 250 mg, 2x/day
     Route: 048
     Dates: start: 20120629

REACTIONS (1)
  - Osteonecrosis [Not Recovered/Not Resolved]
